FAERS Safety Report 25995653 (Version 1)
Quarter: 2025Q4

REPORT INFORMATION
  Report Type: Other
  Country: GB (occurrence: GB)
  Receive Date: 20251104
  Receipt Date: 20251104
  Transmission Date: 20260118
  Serious: Yes (Disabling, Other)
  Sender: FDC LIMITED
  Company Number: None

PATIENT
  Sex: Female

DRUGS (2)
  1. LATANOPROST [Suspect]
     Active Substance: LATANOPROST
     Indication: Product used for unknown indication
     Dosage: 1 DROP IN THE EVENING (BOTH EYES)
     Dates: start: 202508, end: 202510
  2. NETARSUDIL [Suspect]
     Active Substance: NETARSUDIL
     Indication: Product used for unknown indication
     Dosage: 1 DROP BOTH EYES IN THE EVENING
     Dates: start: 202508

REACTIONS (1)
  - Retinal disorder [Not Recovered/Not Resolved]

NARRATIVE: CASE EVENT DATE: 20250801
